FAERS Safety Report 15219579 (Version 1)
Quarter: 2018Q3

REPORT INFORMATION
  Report Type: Spontaneous
  Country: DE (occurrence: DE)
  Receive Date: 20180731
  Receipt Date: 20180731
  Transmission Date: 20181010
  Serious: Yes (Hospitalization)
  Sender: FDA-Public Use
  Company Number: DE-SUN PHARMACEUTICAL INDUSTRIES LTD-2018RR-179947

PATIENT
  Age: 58 Year
  Sex: Female
  Weight: 84 kg

DRUGS (13)
  1. VALSARTAN. [Concomitant]
     Active Substance: VALSARTAN
     Indication: HYPERTENSION
     Dosage: DAILY DOSE: 320 MG MILLGRAM(S) EVERY DAYS
     Route: 048
     Dates: start: 2014
  2. 5?FU [Concomitant]
     Active Substance: FLUOROURACIL
     Dosage: 4535 MG, UNK
     Route: 041
     Dates: start: 20160404, end: 20160406
  3. AVASTIN [Suspect]
     Active Substance: BEVACIZUMAB
     Indication: COLORECTAL CANCER METASTATIC
     Dosage: DAILY DOSE: 380 MG MILLGRAM(S) EVERY 2 WEEKS
     Route: 042
     Dates: start: 20160502, end: 20160502
  4. 5?FU [Concomitant]
     Active Substance: FLUOROURACIL
     Dosage: 4535 MG, UNK
     Route: 041
     Dates: start: 20160418, end: 20160420
  5. 5?FU [Concomitant]
     Active Substance: FLUOROURACIL
     Dosage: 4535 MG, UNK
     Route: 041
     Dates: start: 20160502, end: 20160504
  6. FOLINIC ACID [Suspect]
     Active Substance: LEUCOVORIN
     Dosage: 725 MG, 2/WEEK
     Route: 042
     Dates: start: 20160502, end: 20160502
  7. FERINJECT [Concomitant]
     Active Substance: FERRIC CARBOXYMALTOSE
     Indication: ANAEMIA
     Dosage: DAILY DOSE: 1000 MG MILLGRAM(S) EVERY DAYS
     Route: 042
     Dates: start: 20160406, end: 20160406
  8. OXALIPLATIN. [Suspect]
     Active Substance: OXALIPLATIN
     Indication: COLORECTAL CANCER METASTATIC
     Dosage: 181 MG, 2/WEEK
     Route: 042
     Dates: end: 20160502
  9. OXALIPLATIN. [Suspect]
     Active Substance: OXALIPLATIN
     Dosage: 189 MG, 2/WEEK
     Route: 042
     Dates: start: 20160404, end: 20160502
  10. FOLINIC ACID [Suspect]
     Active Substance: LEUCOVORIN
     Indication: COLORECTAL CANCER METASTATIC
     Dosage: 755 MG, 2/WEEK
     Route: 042
     Dates: start: 20160404, end: 20160418
  11. 5?FU [Concomitant]
     Active Substance: FLUOROURACIL
     Indication: COLORECTAL CANCER METASTATIC
     Dosage: ALSO RECEIVED ON 18/APR/2016 AND 02/MAY/2016
     Route: 040
     Dates: start: 20160404
  12. METOPROLOL. [Concomitant]
     Active Substance: METOPROLOL
     Indication: HYPERTENSION
     Dosage: DAILY DOSE: 95 MG MILLGRAM(S) EVERY DAYS
     Route: 048
     Dates: start: 2014
  13. TOREM [Concomitant]
     Active Substance: TORSEMIDE
     Indication: HYPERTENSION
     Dosage: DAILY DOSE: 10 MG MILLGRAM(S) EVERY DAYS
     Route: 048
     Dates: start: 2014

REACTIONS (3)
  - Seizure [Recovered/Resolved]
  - Posterior reversible encephalopathy syndrome [Recovered/Resolved]
  - Encephalitis [Recovered/Resolved]

NARRATIVE: CASE EVENT DATE: 20160512
